FAERS Safety Report 8936320 (Version 7)
Quarter: 2013Q1

REPORT INFORMATION
  Report Type: Report from Study
  Country: CA (occurrence: CA)
  Receive Date: 20121130
  Receipt Date: 20130225
  Transmission Date: 20140127
  Serious: Yes (Other)
  Sender: FDA-Public Use
  Company Number: CA-PFIZER INC-2012294015

PATIENT
  Age: 73 Year
  Sex: Male
  Weight: 68.7 kg

DRUGS (8)
  1. TOFACITINIB CITRATE [Suspect]
     Indication: RHEUMATOID ARTHRITIS
     Dosage: 10 MG, 2X/DAY
     Route: 048
     Dates: start: 20110411, end: 20121119
  2. ASAPHEN [Concomitant]
     Indication: CARDIOVASCULAR EVENT PROPHYLAXIS
     Dosage: UNK
     Route: 048
     Dates: start: 2006
  3. ATENOLOL ^RATIOPHARM^ [Concomitant]
     Indication: ANGINA PECTORIS
     Dosage: UNK
     Dates: start: 1992
  4. APO-LISINOPRIL [Concomitant]
     Indication: ANGINA PECTORIS
     Dosage: UNK
     Dates: start: 1992
  5. NITRO [Concomitant]
     Indication: ANGINA PECTORIS
     Dosage: UNK
     Route: 060
     Dates: start: 1992
  6. METHOTREXATE SODIUM [Concomitant]
     Indication: RHEUMATOID ARTHRITIS
     Dosage: 20 MG, WEEKLY
     Route: 048
     Dates: start: 20090323
  7. FOLIC ACID [Concomitant]
     Indication: PROPHYLAXIS
     Dosage: 5 MG, 2X/WEEK
     Route: 048
     Dates: start: 20090323
  8. APO-SIMVASTATIN [Concomitant]
     Indication: DYSLIPIDAEMIA
     Dosage: 10 MG, 1X/DAY
     Route: 048
     Dates: start: 19960615

REACTIONS (1)
  - Diverticulitis [Recovered/Resolved]
